FAERS Safety Report 6138473-9 (Version None)
Quarter: 2009Q1

REPORT INFORMATION
  Report Type: 
  Country: None (occurrence: None)
  Receive Date: 20090331
  Receipt Date: 20090325
  Transmission Date: 20090719
  Serious: Yes (Life-Threatening)
  Sender: FDA-Public Use
  Company Number: JP-BRISTOL-MYERS SQUIBB COMPANY-14564090

PATIENT
  Age: 63 Year
  Sex: Male

DRUGS (8)
  1. PARAPLATIN [Suspect]
     Indication: THYMOMA MALIGNANT
     Dosage: STARTED ON 05DEC06.
     Route: 041
     Dates: start: 20070123, end: 20070123
  2. TAXOL [Suspect]
     Indication: THYMOMA MALIGNANT
     Dosage: STARTED ON 05DEC06.
     Route: 041
     Dates: start: 20070123, end: 20070123
  3. DECADRON [Suspect]
     Indication: PREMEDICATION
     Dosage: STARTED ON 05DEC06.
     Route: 042
     Dates: start: 20070123, end: 20070123
  4. KYTRIL [Concomitant]
     Route: 042
     Dates: start: 20061205, end: 20070123
  5. CHLOR-TRIMETON [Concomitant]
     Route: 042
     Dates: start: 20061205, end: 20070123
  6. TENORMIN [Concomitant]
     Route: 048
  7. ADALAT [Concomitant]
     Route: 048
  8. MICARDIS [Concomitant]
     Route: 048

REACTIONS (1)
  - INTRACARDIAC THROMBUS [None]
